FAERS Safety Report 5908951-3 (Version None)
Quarter: 2008Q4

REPORT INFORMATION
  Report Type: 
  Country: None (occurrence: None)
  Receive Date: 20081006
  Receipt Date: 20080930
  Transmission Date: 20090506
  Serious: Yes (Hospitalization)
  Sender: FDA-Public Use
  Company Number: FR-ASTRAZENECA-2008CG01428

PATIENT
  Age: 19001 Day
  Sex: Female

DRUGS (9)
  1. SELOKEN [Suspect]
     Route: 048
     Dates: start: 20080721, end: 20080808
  2. AMARYL [Suspect]
     Route: 048
     Dates: start: 20080721, end: 20080806
  3. TAHOR [Suspect]
     Route: 048
     Dates: start: 20080721, end: 20080807
  4. TRIATEC [Suspect]
     Route: 048
     Dates: start: 20080721, end: 20080808
  5. GLUCOPHAGE [Concomitant]
     Route: 048
     Dates: start: 20080721, end: 20080806
  6. INIPOMP [Concomitant]
     Route: 048
     Dates: start: 20080721
  7. PLAVIX [Concomitant]
     Route: 048
     Dates: start: 20080721
  8. CORTANCYL [Concomitant]
     Indication: SLE ARTHRITIS
     Route: 048
     Dates: start: 20080101
  9. KARDEGIC [Concomitant]
     Route: 048
     Dates: start: 20080721

REACTIONS (4)
  - EOSINOPHILIA [None]
  - MIXED LIVER INJURY [None]
  - PRURITUS [None]
  - RASH MACULO-PAPULAR [None]
